FAERS Safety Report 9644883 (Version 2)
Quarter: 2013Q4

REPORT INFORMATION
  Report Type: Report from Study
  Country: BR (occurrence: BR)
  Receive Date: 20131025
  Receipt Date: 20131025
  Transmission Date: 20140711
  Serious: Yes (Hospitalization, Other)
  Sender: FDA-Public Use
  Company Number: PHHY2013BR089863

PATIENT
  Sex: Female
  Weight: 70 kg

DRUGS (9)
  1. EXELON PATCH [Suspect]
     Indication: PARKINSON^S DISEASE
     Dosage: 9.5 MG, (1 ADHESIVE DAILY)
     Route: 062
     Dates: start: 201308, end: 201308
  2. DONAREN [Concomitant]
     Dosage: UNK UKN, UNK
  3. VYTORIN [Concomitant]
     Dosage: UNK UKN, UNK
  4. SYNTHROID [Concomitant]
     Dosage: UNK UKN, UNK
  5. PANTOPRAZOLE [Concomitant]
     Dosage: UNK UKN, UNK
  6. PROLOPA [Concomitant]
     Dosage: UNK UKN, UNK
  7. MOTILIUM ^BYK GULDEN^ [Concomitant]
     Dosage: UNK UKN, UNK
  8. LABIRIN [Concomitant]
     Dosage: UNK UKN, UNK
  9. ENALAPRIL [Concomitant]
     Dosage: UNK UKN, UNK

REACTIONS (4)
  - Sensory loss [Recovered/Resolved]
  - Aphasia [Recovered/Resolved]
  - Blood pressure decreased [Recovered/Resolved]
  - Malaise [Recovered/Resolved]
